FAERS Safety Report 5003927-5 (Version None)
Quarter: 2006Q2

REPORT INFORMATION
  Report Type: 
  Country: None (occurrence: None)
  Receive Date: 20060502
  Receipt Date: 20060407
  Transmission Date: 20061013
  Serious: Yes (Hospitalization, Disabling)
  Sender: FDA-Public Use
  Company Number: CLOF-10207

PATIENT
  Age: 15 Year
  Sex: Female

DRUGS (5)
  1. CLOFARABINE [Suspect]
     Indication: DRUG USE FOR UNKNOWN INDICATION
     Dosage: 80 MG QD X 5 IV
     Route: 042
     Dates: start: 20060126, end: 20060130
  2. CYTARABINE [Suspect]
     Indication: DRUG USE FOR UNKNOWN INDICATION
     Dosage: 500 MG/M2
     Dates: start: 20060125, end: 20060129
  3. FLUCONAZOLE [Concomitant]
  4. DEXAMETHASONE [Concomitant]
  5. MEROPENEM [Concomitant]

REACTIONS (24)
  - ACUTE RESPIRATORY DISTRESS SYNDROME [None]
  - ALANINE AMINOTRANSFERASE INCREASED [None]
  - ASPARTATE AMINOTRANSFERASE INCREASED [None]
  - BLAST CELL PROLIFERATION [None]
  - BLINDNESS UNILATERAL [None]
  - CLOSTRIDIUM COLITIS [None]
  - EYE HAEMORRHAGE [None]
  - GENERALISED ERYTHEMA [None]
  - GENERALISED OEDEMA [None]
  - HAEMATOTOXICITY [None]
  - HAEMORRHAGE [None]
  - HEPATOTOXICITY [None]
  - LUNG INFILTRATION [None]
  - MUCOSAL INFLAMMATION [None]
  - MUCOSAL ULCERATION [None]
  - OCULAR TOXICITY [None]
  - PANCYTOPENIA [None]
  - PLEURAL EFFUSION [None]
  - PRURITUS [None]
  - PULMONARY TOXICITY [None]
  - PURPURA [None]
  - PYREXIA [None]
  - SKIN EXFOLIATION [None]
  - SKIN TOXICITY [None]
